FAERS Safety Report 7703627-4 (Version None)
Quarter: 2011Q3

REPORT INFORMATION
  Report Type: 
  Country: None (occurrence: None)
  Receive Date: 20110823
  Receipt Date: 20110810
  Transmission Date: 20111222
  Serious: Yes (Hospitalization, Other)
  Sender: FDA-Public Use
  Company Number: PHHY2011US69045

PATIENT
  Sex: Female

DRUGS (3)
  1. CIPROFLOXACIN [Concomitant]
     Dosage: UNK UKN, UNK
  2. LEVAQUIN [Concomitant]
     Dosage: UNK UKN, UNK
  3. GILENYA [Suspect]
     Indication: MULTIPLE SCLEROSIS
     Dosage: 0.5 MG, QD
     Route: 048
     Dates: start: 20110427, end: 20110713

REACTIONS (8)
  - NEPHROLITHIASIS [None]
  - PYREXIA [None]
  - CYSTITIS [None]
  - KIDNEY INFECTION [None]
  - PAIN [None]
  - DIARRHOEA [None]
  - INFECTION [None]
  - BLOOD PRESSURE DECREASED [None]
